FAERS Safety Report 10653625 (Version 2)
Quarter: 2014Q4

REPORT INFORMATION
  Report Type: Spontaneous
  Country: JP (occurrence: JP)
  Receive Date: 20141216
  Receipt Date: 20141224
  Transmission Date: 20150529
  Serious: Yes (Other)
  Sender: FDA-Public Use
  Company Number: JP-UCBSA-2014021175

PATIENT
  Sex: Female

DRUGS (5)
  1. URSO [Concomitant]
     Active Substance: URSODIOL
     Indication: PRODUCT USED FOR UNKNOWN INDICATION
     Dosage: UNK
  2. XYZAL [Suspect]
     Active Substance: LEVOCETIRIZINE DIHYDROCHLORIDE
     Dosage: 5 MG, QOD
     Route: 048
     Dates: start: 201411, end: 20141202
  3. MYSLEE [Concomitant]
     Active Substance: ZOLPIDEM TARTRATE
     Indication: PRODUCT USED FOR UNKNOWN INDICATION
     Dosage: UNK
  4. XYZAL [Suspect]
     Active Substance: LEVOCETIRIZINE DIHYDROCHLORIDE
     Indication: PRURITUS
     Dosage: 5 MG, QD
     Route: 048
     Dates: start: 20141116, end: 201411
  5. PREDONINE [Concomitant]
     Active Substance: PREDNISOLONE\PREDNISOLONE ACETATE\PREDNISOLONE SODIUM SUCCINATE
     Indication: PRODUCT USED FOR UNKNOWN INDICATION
     Dosage: UNK

REACTIONS (4)
  - Renal impairment [Unknown]
  - Aggression [Recovering/Resolving]
  - Occult blood [Unknown]
  - Gastrointestinal haemorrhage [Recovering/Resolving]

NARRATIVE: CASE EVENT DATE: 2014
